FAERS Safety Report 21392160 (Version 1)
Quarter: 2022Q3

REPORT INFORMATION
  Report Type: Spontaneous
  Country: US (occurrence: US)
  Receive Date: 20220929
  Receipt Date: 20220929
  Transmission Date: 20221027
  Serious: Yes (Other)
  Sender: FDA-Public Use
  Company Number: US-AMERICAN REGENT INC-2022002782

PATIENT
  Age: 4 Year
  Sex: Male

DRUGS (17)
  1. BUSULFAN [Suspect]
     Active Substance: BUSULFAN
     Indication: Bone marrow conditioning regimen
     Dosage: MYELOABLATIVE DOSE WITH FIRST HEMATOPOIETIC CELL TRANSPLANTATION
     Route: 065
  2. BUSULFAN [Suspect]
     Active Substance: BUSULFAN
     Indication: Stem cell transplant
     Dosage: MYELOABLATIVE DOSE WITH THIRD HEMATOPOIETIC CELL TRANSPLANTATION
     Route: 065
  3. BUSULFAN [Suspect]
     Active Substance: BUSULFAN
     Indication: Congenital dyserythropoietic anaemia
  4. FLUDARABINE [Concomitant]
     Active Substance: FLUDARABINE PHOSPHATE
     Indication: Bone marrow conditioning regimen
     Dosage: UNK, WITH FIRST HCT
     Route: 065
  5. FLUDARABINE [Concomitant]
     Active Substance: FLUDARABINE PHOSPHATE
     Indication: Stem cell transplant
     Dosage: UNK, WITH SECOND HCT
     Route: 065
  6. FLUDARABINE [Concomitant]
     Active Substance: FLUDARABINE PHOSPHATE
     Indication: Congenital dyserythropoietic anaemia
     Dosage: UNK, WITH THIRD HCT
     Route: 065
  7. THIOTEPA [Concomitant]
     Active Substance: THIOTEPA
     Indication: Bone marrow conditioning regimen
     Dosage: UNK, WITH FIRST HCT
     Route: 065
  8. THIOTEPA [Concomitant]
     Active Substance: THIOTEPA
     Indication: Stem cell transplant
     Dosage: UNK, WITH THIRD HCT
     Route: 065
  9. THIOTEPA [Concomitant]
     Active Substance: THIOTEPA
     Indication: Congenital dyserythropoietic anaemia
  10. THYMOCYTE IMMUNE GLOBULIN NOS [Concomitant]
     Active Substance: THYMOCYTE IMMUNE GLOBULIN NOS
     Indication: Bone marrow conditioning regimen
     Dosage: UNK, WITH FIRST HCT
     Route: 065
  11. THYMOCYTE IMMUNE GLOBULIN NOS [Concomitant]
     Active Substance: THYMOCYTE IMMUNE GLOBULIN NOS
     Indication: Stem cell transplant
  12. THYMOCYTE IMMUNE GLOBULIN NOS [Concomitant]
     Active Substance: THYMOCYTE IMMUNE GLOBULIN NOS
     Indication: Congenital dyserythropoietic anaemia
  13. ALEMTUZUMAB [Concomitant]
     Active Substance: ALEMTUZUMAB
     Indication: Bone marrow conditioning regimen
     Dosage: UNK, WITH SECOND HCT
     Route: 065
  14. ALEMTUZUMAB [Concomitant]
     Active Substance: ALEMTUZUMAB
     Indication: Stem cell transplant
     Dosage: UNK, WITH THIRD HCT
     Route: 065
  15. ALEMTUZUMAB [Concomitant]
     Active Substance: ALEMTUZUMAB
     Indication: Congenital dyserythropoietic anaemia
  16. CYCLOSPORINE [Concomitant]
     Active Substance: CYCLOSPORINE
     Indication: Prophylaxis against graft versus host disease
     Dosage: UNK
     Route: 065
  17. MYCOPHENOLATE MOFETIL [Concomitant]
     Active Substance: MYCOPHENOLATE MOFETIL
     Indication: Prophylaxis against graft versus host disease
     Dosage: UNK
     Route: 065

REACTIONS (3)
  - Growth hormone deficiency [Unknown]
  - Hypothyroidism [Unknown]
  - Product use in unapproved indication [Unknown]
